FAERS Safety Report 10700595 (Version 1)
Quarter: 2015Q1

REPORT INFORMATION
  Report Type: Spontaneous
  Country: FR (occurrence: FR)
  Receive Date: 20150109
  Receipt Date: 20150109
  Transmission Date: 20150721
  Serious: Yes (Hospitalization)
  Sender: FDA-Public Use
  Company Number: FR-SA-2015SA002306

PATIENT
  Age: 84 Year
  Sex: Female

DRUGS (6)
  1. CORDARONE [Concomitant]
     Active Substance: AMIODARONE HYDROCHLORIDE
  2. TEMERIT [Interacting]
     Active Substance: NEBIVOLOL
     Route: 048
     Dates: end: 20140913
  3. EUPRESSYL [Interacting]
     Active Substance: URAPIDIL
     Route: 048
     Dates: end: 20140913
  4. TEMERIT [Interacting]
     Active Substance: NEBIVOLOL
     Route: 048
  5. SPIRONOLACTONE. [Suspect]
     Active Substance: SPIRONOLACTONE
     Route: 048
     Dates: end: 20140913
  6. LASILIX [Interacting]
     Active Substance: FUROSEMIDE
     Route: 048
     Dates: end: 20140913

REACTIONS (2)
  - Orthostatic hypotension [Recovered/Resolved]
  - Drug interaction [Unknown]

NARRATIVE: CASE EVENT DATE: 20140912
